FAERS Safety Report 7749189-7 (Version None)
Quarter: 2011Q3

REPORT INFORMATION
  Report Type: 
  Country: None (occurrence: None)
  Receive Date: 20110909
  Receipt Date: 20110825
  Transmission Date: 20111222
  Serious: Yes (Other)
  Sender: FDA-Public Use
  Company Number: GER/GER/11/0020985

PATIENT
  Sex: Female
  Weight: 82 kg

DRUGS (1)
  1. PRAVASTATIN [Suspect]
     Indication: HYPERCHOLESTEROLAEMIA
     Dosage: 20 MG, ORAL
     Route: 048
     Dates: start: 20100901

REACTIONS (5)
  - PRURITUS [None]
  - ASTHMA [None]
  - DYSPHONIA [None]
  - MYALGIA [None]
  - SCRATCH [None]
